FAERS Safety Report 11168303 (Version 3)
Quarter: 2016Q1

REPORT INFORMATION
  Report Type: Spontaneous
  Country: US (occurrence: US)
  Receive Date: 20150605
  Receipt Date: 20160311
  Transmission Date: 20160525
  Serious: Yes (Other)
  Sender: FDA-Public Use
  Company Number: US-ASTRAZENECA-2014SE12499

PATIENT
  Age: 21626 Day
  Sex: Male
  Weight: 109 kg

DRUGS (42)
  1. PLAVIX [Concomitant]
     Active Substance: CLOPIDOGREL BISULFATE
  2. TRAZODONE HYDROCHLORIDE. [Concomitant]
     Active Substance: TRAZODONE HYDROCHLORIDE
     Dates: start: 20140307
  3. JANUVIA [Concomitant]
     Active Substance: SITAGLIPTIN PHOSPHATE
     Dates: start: 20140930
  4. DOCUSATE [Concomitant]
     Active Substance: DOCUSATE
     Dates: start: 20141114
  5. AMLODIPINE [Concomitant]
     Active Substance: AMLODIPINE BESYLATE
     Dates: start: 20150513
  6. LASIX [Concomitant]
     Active Substance: FUROSEMIDE
     Route: 048
  7. OMEPRAZOLE. [Concomitant]
     Active Substance: OMEPRAZOLE
  8. METOLAZONE. [Concomitant]
     Active Substance: METOLAZONE
     Dates: start: 20140106
  9. TAMSULOSIN [Concomitant]
     Active Substance: TAMSULOSIN
     Dates: start: 20141002
  10. PERCOCET [Concomitant]
     Active Substance: ACETAMINOPHEN\OXYCODONE HYDROCHLORIDE
  11. BYETTA [Suspect]
     Active Substance: EXENATIDE
     Indication: DIABETES MELLITUS
     Route: 065
     Dates: start: 20060717
  12. SYNTHROID [Concomitant]
     Active Substance: LEVOTHYROXINE SODIUM
     Dates: start: 20130122
  13. PREDNISONE. [Concomitant]
     Active Substance: PREDNISONE
     Dates: start: 20131223
  14. LIPITOR [Concomitant]
     Active Substance: ATORVASTATIN CALCIUM
     Route: 065
     Dates: start: 20020822
  15. HYDROXYZINE [Concomitant]
     Active Substance: HYDROXYZINE\HYDROXYZINE HYDROCHLORIDE
     Route: 048
  16. BYETTA [Suspect]
     Active Substance: EXENATIDE
     Indication: DIABETES MELLITUS
     Route: 065
     Dates: start: 20050921
  17. CELEBREX [Concomitant]
     Active Substance: CELECOXIB
  18. CYMBALTA [Concomitant]
     Active Substance: DULOXETINE HYDROCHLORIDE
  19. LANTUS [Concomitant]
     Active Substance: INSULIN GLARGINE
  20. OXYCODONE HYDROCHLORIDE. [Concomitant]
     Active Substance: OXYCODONE HYDROCHLORIDE
     Dates: start: 20130107
  21. LYRICA [Concomitant]
     Active Substance: PREGABALIN
     Dates: start: 20140307
  22. AMBIEN [Concomitant]
     Active Substance: ZOLPIDEM TARTRATE
     Route: 065
  23. FLEXERIL [Concomitant]
     Active Substance: CYCLOBENZAPRINE HYDROCHLORIDE
     Route: 065
  24. COLCHICINE. [Concomitant]
     Active Substance: COLCHICINE
     Route: 065
  25. HUMALOG [Concomitant]
     Active Substance: INSULIN LISPRO
  26. BYETTA [Suspect]
     Active Substance: EXENATIDE
     Indication: DIABETES MELLITUS
     Dosage: UNK
     Route: 065
     Dates: start: 20051101, end: 20090423
  27. EFFIENT [Concomitant]
     Active Substance: PRASUGREL HYDROCHLORIDE
     Dates: start: 20130102
  28. POTASSIUM CHLORIDE. [Concomitant]
     Active Substance: POTASSIUM CHLORIDE
     Dates: start: 20130201
  29. AMIODARONE [Concomitant]
     Active Substance: AMIODARONE
     Dates: start: 20140307
  30. XANAX [Concomitant]
     Active Substance: ALPRAZOLAM
  31. AMOXIL/CLAVUL [Concomitant]
     Dosage: 875 TAB
     Dates: start: 20130122
  32. LOSARTAN POTASSIUM. [Concomitant]
     Active Substance: LOSARTAN POTASSIUM
     Dates: start: 20140522
  33. GEMFIBROZIL. [Concomitant]
     Active Substance: GEMFIBROZIL
     Dates: start: 20150102
  34. ASPIRIN. [Concomitant]
     Active Substance: ASPIRIN
     Route: 065
  35. BENAZEPRIL [Concomitant]
     Active Substance: BENAZEPRIL HYDROCHLORIDE
     Dates: start: 20130219
  36. METOPROLOL TARTRATE. [Concomitant]
     Active Substance: METOPROLOL TARTRATE
     Dates: start: 20130213
  37. GABAPENTIN. [Concomitant]
     Active Substance: GABAPENTIN
     Dates: start: 20130711
  38. FUROSEMIDE. [Concomitant]
     Active Substance: FUROSEMIDE
  39. ALPRAZOLAM. [Concomitant]
     Active Substance: ALPRAZOLAM
     Dates: start: 20130107
  40. FLUTICASONE [Concomitant]
     Active Substance: FLUTICASONE\FLUTICASONE PROPIONATE
     Dates: start: 20130117
  41. WARFARIN [Concomitant]
     Active Substance: WARFARIN
     Dates: start: 20130213
  42. ISOSORBIDE MONONITRATE. [Concomitant]
     Active Substance: ISOSORBIDE MONONITRATE
     Dates: start: 20131223

REACTIONS (4)
  - Papillary thyroid cancer [Unknown]
  - Pancreatic carcinoma [Unknown]
  - Papillary cystadenoma lymphomatosum [Unknown]
  - Hypothyroidism [Unknown]

NARRATIVE: CASE EVENT DATE: 20100225
